FAERS Safety Report 8076413-6 (Version None)
Quarter: 2012Q1

REPORT INFORMATION
  Report Type: 
  Country: None (occurrence: None)
  Receive Date: 20120127
  Receipt Date: 20120118
  Transmission Date: 20120608
  Serious: Yes (Death, Other)
  Sender: FDA-Public Use
  Company Number: CA-ROCHE-774078

PATIENT
  Sex: Female

DRUGS (5)
  1. ZOLOFT [Concomitant]
  2. AVASTIN [Suspect]
     Indication: GLIOBLASTOMA
     Dosage: DOSE VARIED BETWEEN 480MG, 500MG AND 510MG. FORM:INFUSION
     Route: 042
  3. LIPIDIL [Concomitant]
  4. TEGRETOL [Concomitant]
  5. TEMOZOLOMIDE [Concomitant]

REACTIONS (3)
  - RASH PRURITIC [None]
  - CONVULSION [None]
  - DISEASE PROGRESSION [None]
